FAERS Safety Report 7644536-9 (Version None)
Quarter: 2011Q3

REPORT INFORMATION
  Report Type: 
  Country: None (occurrence: None)
  Receive Date: 20110729
  Receipt Date: 20110725
  Transmission Date: 20111222
  Serious: Yes (Death, Other)
  Sender: FDA-Public Use
  Company Number: US-ELI_LILLY_AND_COMPANY-US201106009071

PATIENT
  Sex: Male
  Weight: 49.433 kg

DRUGS (12)
  1. MORPHINE SULFATE [Concomitant]
     Dosage: UNK
  2. FERROUS SULFATE TAB [Concomitant]
  3. ALBUTEROL SULFATE AUTOHALER [Concomitant]
  4. NAPROSON [Concomitant]
  5. GEMZAR [Suspect]
     Dosage: UNK UNK, UNKNOWN
     Route: 042
     Dates: start: 20100730, end: 20101005
  6. DECADRON [Concomitant]
  7. VALIUM [Concomitant]
  8. ZANTAC [Concomitant]
  9. TYLENOL                                 /SCH/ [Concomitant]
  10. MEGACE [Concomitant]
  11. COMPAZINE [Concomitant]
  12. POTASSIUM CHLORIDE [Concomitant]

REACTIONS (2)
  - NEOPLASM PROGRESSION [None]
  - GENERAL PHYSICAL HEALTH DETERIORATION [None]
